FAERS Safety Report 16700812 (Version 3)
Quarter: 2019Q3

REPORT INFORMATION
  Report Type: Report from Study
  Country: US (occurrence: US)
  Receive Date: 20190814
  Receipt Date: 20190828
  Transmission Date: 20191004
  Serious: No
  Sender: FDA-Public Use
  Company Number: PHEH2019US033149

PATIENT
  Sex: Female

DRUGS (1)
  1. ENTRESTO [Suspect]
     Active Substance: SACUBITRIL\VALSARTAN
     Indication: CARDIAC FAILURE
     Dosage: 1 DF, BID (24MG OF SACUBITRIL/26 MG OF VALSARTAN)
     Route: 048

REACTIONS (4)
  - Arthritis [Unknown]
  - Cough [Unknown]
  - Nasopharyngitis [Unknown]
  - Feeling drunk [Unknown]
